FAERS Safety Report 9125883 (Version 2)
Quarter: 2019Q4

REPORT INFORMATION
  Report Type: Spontaneous
  Country: DK (occurrence: DK)
  Receive Date: 20130121
  Receipt Date: 20191009
  Transmission Date: 20200122
  Serious: Yes (Other)
  Sender: FDA-Public Use
  Company Number: DK-MYLANLABS-2013S1001051

PATIENT
  Age: 28 Year
  Sex: Female
  Weight: 59 kg

DRUGS (8)
  1. EFEXOR [Suspect]
     Active Substance: VENLAFAXINE HYDROCHLORIDE
     Indication: DEPRESSION
     Dosage: 375 MG,QD (DOSE1:375MG PER DAY)
     Route: 065
     Dates: start: 20100622
  2. LAMOTRIGINE. [Suspect]
     Active Substance: LAMOTRIGINE
     Indication: DEPRESSION
     Dosage: UNK
     Route: 065
     Dates: start: 20110512
  3. METHOTREXATE SODIUM. [Suspect]
     Active Substance: METHOTREXATE SODIUM
     Indication: ARTHRITIS
     Dosage: 15 MG,QW (15 MG,HS)
     Dates: start: 20110517
  4. IBUPROFEN. [Concomitant]
     Active Substance: IBUPROFEN
     Indication: BACK INJURY
     Dosage: 600 UNK,UNK
     Dates: start: 200102
  5. AGOMELATINE [Suspect]
     Active Substance: AGOMELATINE
     Indication: DEPRESSION
     Dosage: UNK
     Dates: start: 20110324
  6. ETHINYLESTRADIOL [Concomitant]
     Active Substance: ETHINYL ESTRADIOL
     Indication: PROPHYLAXIS
     Dosage: UNK
     Dates: start: 2000
  7. FOLIMET [Concomitant]
     Active Substance: FOLIC ACID
     Indication: PROPHYLAXIS
     Dosage: 5 UNK,QW
  8. FOLIMET [Concomitant]
     Active Substance: FOLIC ACID
     Dosage: 5 MILLIGRAM, QD 5 MG,HS

REACTIONS (11)
  - Amnesia [Recovering/Resolving]
  - Hot flush [Recovering/Resolving]
  - Dyskinesia [Recovering/Resolving]
  - Nightmare [Recovering/Resolving]
  - Anxiety [Recovering/Resolving]
  - Loss of libido [Unknown]
  - Hyperhidrosis [Unknown]
  - Disturbance in attention [Recovering/Resolving]
  - Anorgasmia [Unknown]
  - Tremor [Recovering/Resolving]
  - Insomnia [Recovering/Resolving]
